FAERS Safety Report 7806721-2 (Version None)
Quarter: 2011Q4

REPORT INFORMATION
  Report Type: 
  Country: None (occurrence: None)
  Receive Date: 20111011
  Receipt Date: 20111011
  Transmission Date: 20120403
  Serious: Yes (Life-Threatening, Hospitalization, Other)
  Sender: FDA-Public Use
  Company Number: PHHO2007US13730

PATIENT
  Age: 46 Year
  Sex: Female

DRUGS (5)
  1. GILENYA [Suspect]
     Indication: MULTIPLE SCLEROSIS
     Dosage: 1.25 MG, UNK
     Route: 048
     Dates: start: 20070705, end: 20070815
  2. ACTIQ [Concomitant]
  3. OXYCODONE HCL [Concomitant]
  4. XANAX [Concomitant]
  5. DURAGESIC-100 [Concomitant]

REACTIONS (27)
  - HAEMORRHAGE INTRACRANIAL [None]
  - APRAXIA [None]
  - COGNITIVE DISORDER [None]
  - HYPERTONIA [None]
  - GAIT DISTURBANCE [None]
  - DEHYDRATION [None]
  - HEMIANOPIA HOMONYMOUS [None]
  - SINUS DISORDER [None]
  - MOOD ALTERED [None]
  - MUSCLE ATROPHY [None]
  - BRAIN OEDEMA [None]
  - ENCEPHALOMALACIA [None]
  - HEMIPLEGIA [None]
  - MUSCULAR WEAKNESS [None]
  - HYPOKINESIA [None]
  - EMBOLIC STROKE [None]
  - EXTENSOR PLANTAR RESPONSE [None]
  - GLIOSIS [None]
  - CENTRAL NERVOUS SYSTEM LESION [None]
  - PARALYSIS [None]
  - PERONEAL NERVE PALSY [None]
  - AMNESIA [None]
  - HYPOREFLEXIA [None]
  - NUCLEAR MAGNETIC RESONANCE IMAGING ABNORMAL [None]
  - HEMIPARESIS [None]
  - HEADACHE [None]
  - CYST [None]
